FAERS Safety Report 9295435 (Version 1)
Quarter: 2013Q2

REPORT INFORMATION
  Report Type: Spontaneous
  Country: US (occurrence: None)
  Receive Date: 20130516
  Receipt Date: 20130516
  Transmission Date: 20140414
  Serious: No
  Sender: FDA-Public Use
  Company Number: None

PATIENT
  Age: 69 Year
  Sex: Male
  Weight: 102.7 kg

DRUGS (1)
  1. DIPHENHYDRAMINE [Suspect]
     Indication: HYPERSENSITIVITY
     Route: 048
     Dates: start: 20130213, end: 20130220

REACTIONS (2)
  - Urticaria [None]
  - Pruritus [None]
